FAERS Safety Report 4979214-8 (Version None)
Quarter: 2006Q2

REPORT INFORMATION
  Report Type: 
  Country: None (occurrence: None)
  Receive Date: 20060421
  Receipt Date: 20060411
  Transmission Date: 20061013
  Serious: Yes (Other)
  Sender: FDA-Public Use
  Company Number: 2006GB00617

PATIENT
  Age: 32 Year
  Sex: Female

DRUGS (3)
  1. GOSERELIN [Suspect]
     Indication: UTERINE LEIOMYOMA
     Route: 048
     Dates: start: 20060101
  2. TAMOXIFEN CITRATE [Suspect]
     Indication: BREAST CANCER
     Route: 048
     Dates: start: 20020101
  3. FERROUS SULFATE TAB [Concomitant]
     Indication: ANAEMIA
     Route: 048
     Dates: start: 20060301

REACTIONS (1)
  - DEEP VEIN THROMBOSIS [None]
